FAERS Safety Report 5733431-8 (Version None)
Quarter: 2008Q2

REPORT INFORMATION
  Report Type: 
  Country: None (occurrence: None)
  Receive Date: 20080509
  Receipt Date: 20080502
  Transmission Date: 20081010
  Serious: Yes (Hospitalization)
  Sender: FDA-Public Use
  Company Number: AU-ASTRAZENECA-2008AP03517

PATIENT
  Sex: Female

DRUGS (4)
  1. MARCAINE [Suspect]
     Route: 042
     Dates: start: 20070816, end: 20070817
  2. ASPIRIN [Concomitant]
     Route: 048
  3. PERINDOPRIL ERBUMINE [Concomitant]
     Route: 048
  4. VYTORIN [Concomitant]
     Route: 048

REACTIONS (1)
  - RASH PRURITIC [None]
